FAERS Safety Report 6692240-6 (Version None)
Quarter: 2010Q2

REPORT INFORMATION
  Report Type: 
  Country: None (occurrence: None)
  Receive Date: 20100422
  Receipt Date: 20100411
  Transmission Date: 20101027
  Serious: Yes (Death, Hospitalization, Other)
  Sender: FDA-Public Use
  Company Number: US-BAXTER-2010BH008957

PATIENT
  Age: 67 Year
  Sex: Female

DRUGS (6)
  1. DIANEAL [Suspect]
     Indication: PERITONEAL DIALYSIS
     Route: 033
     Dates: start: 20070101, end: 20100325
  2. DIANEAL [Suspect]
     Route: 033
     Dates: start: 20070101, end: 20100325
  3. DIANEAL [Suspect]
     Indication: PERITONEAL DIALYSIS
     Route: 033
     Dates: start: 20070101, end: 20100325
  4. DIANEAL [Suspect]
     Route: 033
     Dates: start: 20070101, end: 20100325
  5. PREGABALIN [Suspect]
     Indication: DRUG USE FOR UNKNOWN INDICATION
     Route: 048
     Dates: start: 20100201, end: 20100315
  6. NEURONTIN [Suspect]
     Indication: DRUG USE FOR UNKNOWN INDICATION
     Route: 048
     Dates: start: 20090101, end: 20100315

REACTIONS (4)
  - DRUG HYPERSENSITIVITY [None]
  - RASH GENERALISED [None]
  - RESPIRATORY ARREST [None]
  - RESPIRATORY RATE DECREASED [None]
